FAERS Safety Report 6909039-5 (Version None)
Quarter: 2010Q3

REPORT INFORMATION
  Report Type: 
  Country: None (occurrence: None)
  Receive Date: 20100805
  Receipt Date: 20100803
  Transmission Date: 20110219
  Serious: Yes (Hospitalization, Other)
  Sender: FDA-Public Use
  Company Number: US-BRISTOL-MYERS SQUIBB COMPANY-14868541

PATIENT
  Age: 73 Year
  Sex: Female
  Weight: 122 kg

DRUGS (10)
  1. COUMADIN [Suspect]
     Dosage: 1DF- 2.5 MG-3 MG
     Route: 048
  2. HEPARIN SODIUM [Suspect]
     Route: 042
  3. PREDNISONE [Concomitant]
     Dosage: DECREASED TO 10 MG
     Dates: start: 20090401
  4. PLAVIX [Concomitant]
     Route: 048
  5. ASPIRIN [Concomitant]
     Route: 048
  6. SPIRONOLACTONE [Concomitant]
     Route: 048
  7. DIOVAN [Concomitant]
     Route: 048
  8. ACETAMINOPHEN AND HYDROCODONE BITARTRATE [Concomitant]
     Dosage: 1DF-10/500 UNITS NOT MENTIONED
  9. OMEPRAZOLE [Concomitant]
     Route: 048
  10. LEVAQUIN [Concomitant]
     Indication: INFUSION SITE INFECTION
     Route: 048
     Dates: end: 20091123

REACTIONS (3)
  - BURNING SENSATION [None]
  - INTERNATIONAL NORMALISED RATIO FLUCTUATION [None]
  - MUSCLE SPASMS [None]
